FAERS Safety Report 8757803 (Version 1)
Quarter: 2012Q4

REPORT INFORMATION
  Report Type: Report from Study
  Country: CA (occurrence: CA)
  Receive Date: 20120828
  Receipt Date: 20120828
  Transmission Date: 20130627
  Serious: Yes (Other)
  Sender: FDA-Public Use
  Company Number: CA-JNJFOC-20120810521

PATIENT
  Sex: Male
  Weight: 76.5 kg

DRUGS (8)
  1. REMICADE [Suspect]
     Indication: COLITIS ULCERATIVE
     Dosage: 4th infusion
     Route: 042
     Dates: start: 20120821
  2. REMICADE [Suspect]
     Indication: COLITIS ULCERATIVE
     Route: 042
     Dates: start: 20120625
  3. REMICADE [Suspect]
     Indication: COLITIS ULCERATIVE
     Route: 042
     Dates: start: 20120528
  4. REMICADE [Suspect]
     Indication: COLITIS ULCERATIVE
     Dosage: 1st infusion
     Route: 042
     Dates: start: 20120514
  5. AZATHIOPRINE [Concomitant]
     Indication: CROHN^S DISEASE
     Route: 048
  6. PREDNISONE [Concomitant]
     Indication: CROHN^S DISEASE
     Route: 048
  7. CALCIUM [Concomitant]
     Route: 065
  8. VITAMIN D [Concomitant]
     Route: 065

REACTIONS (2)
  - Cyst [Recovered/Resolved]
  - Crohn^s disease [Recovering/Resolving]
